FAERS Safety Report 7321901-0 (Version None)
Quarter: 2011Q1

REPORT INFORMATION
  Report Type: 
  Country: None (occurrence: None)
  Receive Date: 20110228
  Receipt Date: 20110219
  Transmission Date: 20110831
  Serious: Yes (Other)
  Sender: FDA-Public Use
  Company Number: BR-ROCHE-745015

PATIENT
  Sex: Male
  Weight: 67 kg

DRUGS (6)
  1. ZETSIM [Suspect]
     Indication: BLOOD CHOLESTEROL DECREASED
     Dosage: DOSE: 10+20 MG
     Route: 065
  2. CRESTOR [Concomitant]
     Indication: BLOOD CHOLESTEROL DECREASED
  3. ZETIA [Suspect]
     Indication: BLOOD CHOLESTEROL DECREASED
     Route: 065
  4. LIPITOR [Concomitant]
     Indication: BLOOD CHOLESTEROL DECREASED
  5. BONIVA [Suspect]
     Indication: OSTEOPENIA
     Dosage: EACH ON AN EMPTY STOMACH. OTHER INDICATION: ARTHROSIS
     Route: 048
     Dates: start: 20100801
  6. ARTRODAR [Concomitant]

REACTIONS (8)
  - PAIN [None]
  - IRRITABILITY [None]
  - DEPRESSION [None]
  - INSOMNIA [None]
  - GAIT DISTURBANCE [None]
  - MYALGIA [None]
  - BONE PAIN [None]
  - DECREASED ACTIVITY [None]
